FAERS Safety Report 25761648 (Version 1)
Quarter: 2025Q3

REPORT INFORMATION
  Report Type: Spontaneous
  Country: US (occurrence: None)
  Receive Date: 20250903
  Receipt Date: 20250903
  Transmission Date: 20251020
  Serious: Yes (Life-Threatening, Hospitalization, Disabling)
  Sender: FDA-CTU
  Company Number: None

PATIENT
  Age: 34 Year
  Sex: Female
  Weight: 76.5 kg

DRUGS (1)
  1. RINVOQ [Suspect]
     Active Substance: UPADACITINIB
     Indication: Guttate psoriasis
     Dosage: OTHER QUANTITY : 1 TABLET(S);?FREQUENCY : DAILY;?
     Route: 048
     Dates: start: 20231204, end: 20240526

REACTIONS (5)
  - Deep vein thrombosis [None]
  - Pulmonary embolism [None]
  - Nerve injury [None]
  - Soft tissue necrosis [None]
  - Gait disturbance [None]

NARRATIVE: CASE EVENT DATE: 20240524
